FAERS Safety Report 12443657 (Version 1)
Quarter: 2016Q2

REPORT INFORMATION
  Report Type: Spontaneous
  Country: US (occurrence: US)
  Receive Date: 20160607
  Receipt Date: 20160607
  Transmission Date: 20160815
  Serious: No
  Sender: FDA-Public Use
  Company Number: US-PFIZER INC-2016274313

PATIENT
  Age: 50 Year
  Sex: Female
  Weight: 46 kg

DRUGS (4)
  1. TIROSINT [Suspect]
     Active Substance: LEVOTHYROXINE SODIUM
     Indication: AUTOIMMUNE THYROIDITIS
  2. CYTOMEL [Suspect]
     Active Substance: LIOTHYRONINE SODIUM
     Indication: AUTOIMMUNE THYROIDITIS
  3. TIROSINT [Suspect]
     Active Substance: LEVOTHYROXINE SODIUM
     Indication: HYPERTHYROIDISM
     Dosage: 25 UG, 2X/DAY (25MCG IN THE MORNING AND 25MCG IN AFTERNOON)
     Route: 048
  4. CYTOMEL [Suspect]
     Active Substance: LIOTHYRONINE SODIUM
     Indication: HYPERTHYROIDISM
     Dosage: 5 UG, 4X/DAY
     Route: 048

REACTIONS (2)
  - Fatigue [Not Recovered/Not Resolved]
  - Blood glucose decreased [Unknown]
